FAERS Safety Report 21099344 (Version 1)
Quarter: 2022Q3

REPORT INFORMATION
  Report Type: Spontaneous
  Country: US (occurrence: None)
  Receive Date: 20220719
  Receipt Date: 20220719
  Transmission Date: 20221027
  Serious: No
  Sender: FDA-Public Use
  Company Number: None

PATIENT
  Sex: Female

DRUGS (1)
  1. SIMPONI [Suspect]
     Active Substance: GOLIMUMAB
     Indication: Psoriatic arthropathy
     Dosage: 50MG EVERY MONTH SUBCUTANEOUS?
     Route: 058
     Dates: start: 20220401

REACTIONS (4)
  - Drug ineffective [None]
  - Pruritus [None]
  - Skin burning sensation [None]
  - Rash macular [None]
